FAERS Safety Report 17784781 (Version 1)
Quarter: 2020Q2

REPORT INFORMATION
  Report Type: Spontaneous
  Country: DE (occurrence: DE)
  Receive Date: 20200513
  Receipt Date: 20200513
  Transmission Date: 20200714
  Serious: Yes (Other)
  Sender: FDA-Public Use
  Company Number: DE-ELI_LILLY_AND_COMPANY-DE202003005474

PATIENT
  Age: 85 Year
  Sex: Male

DRUGS (1)
  1. TRULICITY [Suspect]
     Active Substance: DULAGLUTIDE
     Indication: PRODUCT USED FOR UNKNOWN INDICATION
     Dosage: UNK, UNKNOWN
     Route: 065
     Dates: start: 201911

REACTIONS (5)
  - Transitional cell carcinoma [Unknown]
  - Muscular weakness [Unknown]
  - Erectile dysfunction [Unknown]
  - Myopathy [Unknown]
  - Paraneoplastic syndrome [Unknown]

NARRATIVE: CASE EVENT DATE: 202001
